FAERS Safety Report 10174073 (Version 2)
Quarter: 2014Q2

REPORT INFORMATION
  Report Type: Spontaneous
  Country: US (occurrence: US)
  Receive Date: 20140515
  Receipt Date: 20140515
  Transmission Date: 20141212
  Serious: Yes (Hospitalization, Other)
  Sender: FDA-Public Use
  Company Number: PHHY2014US053582

PATIENT
  Age: 54 Year
  Sex: Female

DRUGS (15)
  1. BACLOFEN INTRATHECAL [Suspect]
     Indication: MUSCLE SPASTICITY
     Dosage: 315.43 UG/DAY
     Route: 037
  2. TRAMADOL HYDROCHLORIDE TABLETS [Suspect]
     Indication: PAIN
     Dosage: 50 MG, EVERY 4 HOURS, AS NEEDED
     Route: 048
  3. CARBAMAZEPINE [Suspect]
     Dosage: 2 DF, BID
     Route: 048
  4. BACLOFEN [Suspect]
     Dosage: 20 MG, EVERY SIX HOUR, AS NEEDED
     Route: 048
  5. POTASSIUM CHLORIDE [Suspect]
     Dosage: 0.5 DF, DAILY
     Route: 048
  6. BUPIVACAINE [Suspect]
     Dosage: 26.451 MG/DAY (40 MG/ ML)
     Route: 037
  7. BUPIVACAINE [Suspect]
     Dosage: UNK UKN, UNK (35 MG/ ML)
  8. LASIX [Suspect]
     Indication: DYSPNOEA
     Dosage: 1 DF, AS NEEDED, DAILY
     Route: 048
  9. COLACE [Suspect]
     Dosage: 100 MG, BID
  10. RESTASIS [Suspect]
     Dosage: 1 GTT, BID PER EYE
  11. ARTIFICIAL TEARS                   /90046201/ [Suspect]
     Dosage: UNK UKN, UNK (OCULAR LUBRICATION)
  12. FERROUS SULFATE [Suspect]
     Dosage: 65 MG, BID
     Route: 048
  13. MVI [Suspect]
     Dosage: 1 DF, DAILY
  14. ASPIRIN [Suspect]
     Dosage: 1 DF, DAILY
  15. FLONASE [Suspect]
     Dosage: UNK UKN, DAILY AS NEEDED

REACTIONS (2)
  - Muscle tightness [Unknown]
  - Muscle spasticity [Unknown]
